FAERS Safety Report 15181924 (Version 2)
Quarter: 2018Q3

REPORT INFORMATION
  Report Type: Spontaneous
  Country: RU (occurrence: RU)
  Receive Date: 20180723
  Receipt Date: 20180731
  Transmission Date: 20181010
  Serious: Yes (Hospitalization, Other)
  Sender: FDA-Public Use
  Company Number: RU-GLAXOSMITHKLINE-RU2018130151

PATIENT
  Age: 61 Year
  Sex: Male
  Weight: 104 kg

DRUGS (5)
  1. CONCOR [Concomitant]
     Active Substance: BISOPROLOL FUMARATE
     Indication: HYPERTONIA
     Dosage: 5 MG, UNK
     Route: 048
     Dates: start: 2016
  2. CARDIOMAGNYL [Concomitant]
     Active Substance: ASPIRIN\MAGNESIUM HYDROXIDE
     Indication: ARTERIOSCLEROSIS
     Dosage: 1 DF, UNK
     Route: 048
     Dates: start: 2016
  3. NOLIPREL FORTE [Concomitant]
     Indication: HYPERTONIA
     Dosage: 1 DF, UNK
     Route: 048
     Dates: start: 2016
  4. DICLOFENAC [Suspect]
     Active Substance: DICLOFENAC
     Indication: PRODUCT USED FOR UNKNOWN INDICATION
     Dosage: 150 MG, QD
     Route: 048
     Dates: start: 20180613, end: 20180615
  5. DICLOFENAC [Suspect]
     Active Substance: DICLOFENAC
     Dosage: 75 MG, QD
     Route: 048
     Dates: start: 20180616, end: 20180625

REACTIONS (1)
  - Cellulitis [Recovered/Resolved]

NARRATIVE: CASE EVENT DATE: 20180705
